FAERS Safety Report 21590106 (Version 2)
Quarter: 2022Q4

REPORT INFORMATION
  Report Type: Other
  Country: PL (occurrence: None)
  Receive Date: 20221114
  Receipt Date: 20221215
  Transmission Date: 20230113
  Serious: Yes (Other)
  Sender: FDA-Public Use
  Company Number: PL-ROCHE-3216960

PATIENT
  Age: 58 Year
  Sex: Male

DRUGS (3)
  1. RITUXIMAB [Suspect]
     Active Substance: RITUXIMAB
     Indication: Chronic lymphocytic leukaemia
     Route: 042
  2. RITUXIMAB [Suspect]
     Active Substance: RITUXIMAB
     Indication: Paraneoplastic pemphigus
  3. PREDNISONE [Concomitant]
     Active Substance: PREDNISONE
     Dosage: FOR 5 MONTHS

REACTIONS (1)
  - Anaphylactic shock [Unknown]
